FAERS Safety Report 6844213-8 (Version None)
Quarter: 2010Q3

REPORT INFORMATION
  Report Type: 
  Country: None (occurrence: None)
  Receive Date: 20100715
  Receipt Date: 20100629
  Transmission Date: 20110219
  Serious: Yes (Hospitalization)
  Sender: FDA-Public Use
  Company Number: B0659735A

PATIENT
  Age: 43 Year
  Sex: Female

DRUGS (3)
  1. SERETIDE [Suspect]
     Indication: ASTHMA
     Dosage: 1PUFF TWICE PER DAY
     Route: 055
     Dates: start: 20100531, end: 20100601
  2. CLARITIN [Concomitant]
  3. UNKNOWN DRUG [Concomitant]

REACTIONS (3)
  - AGITATION [None]
  - DYSPNOEA [None]
  - NON-CARDIAC CHEST PAIN [None]
